FAERS Safety Report 16274247 (Version 1)
Quarter: 2019Q2

REPORT INFORMATION
  Report Type: Spontaneous
  Country: CZ (occurrence: CZ)
  Receive Date: 20190506
  Receipt Date: 20190506
  Transmission Date: 20190711
  Serious: Yes (Other)
  Sender: FDA-Public Use
  Company Number: PHHY2019CZ100692

PATIENT
  Age: 54 Year
  Sex: Male

DRUGS (11)
  1. PIOGLITAZONE. [Suspect]
     Active Substance: PIOGLITAZONE
     Indication: TYPE 2 DIABETES MELLITUS
     Dosage: 15 MG, QD
     Route: 048
  2. INSULINE GLARGINE [Suspect]
     Active Substance: INSULIN GLARGINE
     Indication: TYPE 2 DIABETES MELLITUS
     Dosage: 300 U/ML, 24 U AT 22 PM
     Route: 065
  3. LYXUMIA [Concomitant]
     Active Substance: LIXISENATIDE
     Indication: PRODUCT USED FOR UNKNOWN INDICATION
     Dosage: UNK
     Route: 065
  4. GLYCLADA [Concomitant]
     Active Substance: GLICLAZIDE
     Indication: PRODUCT USED FOR UNKNOWN INDICATION
     Dosage: 60 MG, QD 1.5-0-0
     Route: 065
  5. METFORMIN [Suspect]
     Active Substance: METFORMIN HYDROCHLORIDE
     Indication: TYPE 2 DIABETES MELLITUS
     Dosage: 1000 MG, QD
     Route: 048
  6. INSULINE GLARGINE [Suspect]
     Active Substance: INSULIN GLARGINE
     Dosage: 28 U, (TITRATED)
     Route: 065
  7. KOMBOGLYZE [Suspect]
     Active Substance: METFORMIN HYDROCHLORIDE\SAXAGLIPTIN
     Indication: TYPE 2 DIABETES MELLITUS
     Dosage: 2.5 MG/1000 MG
     Route: 048
  8. LANTUS [Concomitant]
     Active Substance: INSULIN GLARGINE
     Indication: PRODUCT USED FOR UNKNOWN INDICATION
     Dosage: 100 U/ML, 8U WITH TITRATION
     Route: 065
  9. PIOGLITAZONE. [Suspect]
     Active Substance: PIOGLITAZONE
     Dosage: 30 MG, QD
     Route: 048
  10. INSULINE GLARGINE [Suspect]
     Active Substance: INSULIN GLARGINE
     Dosage: 48 U, (INCREASED)
     Route: 065
  11. LANTUS [Concomitant]
     Active Substance: INSULIN GLARGINE
     Dosage: 20 U, TITRATED
     Route: 065

REACTIONS (2)
  - Diabetes mellitus inadequate control [Recovering/Resolving]
  - Erectile dysfunction [Recovered/Resolved]
